FAERS Safety Report 21878352 (Version 1)
Quarter: 2023Q1

REPORT INFORMATION
  Report Type: Spontaneous
  Country: GR (occurrence: GR)
  Receive Date: 20230118
  Receipt Date: 20230118
  Transmission Date: 20230418
  Serious: Yes (Death, Life-Threatening, Hospitalization, Other)
  Sender: FDA-Public Use
  Company Number: GR-PFIZER INC-202201329594

PATIENT
  Age: 50 Year
  Sex: Male

DRUGS (4)
  1. CIPROFLOXACIN [Suspect]
     Active Substance: CIPROFLOXACIN
     Indication: Brucellosis
     Dosage: 1000 MILLIGRAM, QD,500 MG, 2X/DAY
     Route: 065
  2. DOXYCYCLINE [Suspect]
     Active Substance: DOXYCYCLINE
     Indication: Brucellosis
     Dosage: 200 MILLIGRAM, QD,100 MG, 2X/DAY
     Route: 065
  3. RIFAMPIN [Suspect]
     Active Substance: RIFAMPIN
     Indication: Brucellosis
     Dosage: 300 MILLIGRAM, QD,300 MG, DAILY (DOSE WAS HALVED)
     Route: 065
  4. RIFAMPIN [Suspect]
     Active Substance: RIFAMPIN
     Dosage: 600 MILLIGRAM, QD, 600 MG, DAILY
     Route: 065

REACTIONS (4)
  - Hepatic encephalopathy [Fatal]
  - Jaundice [Fatal]
  - Condition aggravated [Fatal]
  - Haemorrhage intracranial [Fatal]
